FAERS Safety Report 22762779 (Version 2)
Quarter: 2023Q4

REPORT INFORMATION
  Report Type: Spontaneous
  Country: PR (occurrence: PR)
  Receive Date: 20230728
  Receipt Date: 20231120
  Transmission Date: 20240110
  Serious: Yes (Other)
  Sender: FDA-Public Use
  Company Number: PR-BRISTOL-MYERS SQUIBB COMPANY-2023-106008

PATIENT
  Age: 65 Year
  Sex: Female
  Weight: 68.49 kg

DRUGS (2)
  1. POMALYST [Suspect]
     Active Substance: POMALIDOMIDE
     Indication: Plasma cell myeloma
     Dosage: TAKE ONE CAPSULE DAILY FOR 21 DAYS
     Route: 048
     Dates: start: 20230315
  2. POMALYST [Suspect]
     Active Substance: POMALIDOMIDE
     Dosage: TAKE ONE CAPSULE DAILY FOR 21 DAYS
     Route: 048

REACTIONS (3)
  - Neutropenia [Unknown]
  - Platelet count decreased [Unknown]
  - Back pain [Not Recovered/Not Resolved]

NARRATIVE: CASE EVENT DATE: 20230701
